FAERS Safety Report 21051583 (Version 1)
Quarter: 2022Q3

REPORT INFORMATION
  Report Type: Spontaneous
  Country: PT (occurrence: PT)
  Receive Date: 20220707
  Receipt Date: 20220707
  Transmission Date: 20221026
  Serious: Yes (Life-Threatening, Hospitalization, Other)
  Sender: FDA-Public Use
  Company Number: None

PATIENT
  Age: 10 Year
  Sex: Female
  Weight: 26 kg

DRUGS (4)
  1. HYDROCORTISONE [Suspect]
     Active Substance: HYDROCORTISONE
     Indication: Acute lymphocytic leukaemia
     Dosage: TRIPLE IT CHEMOTHERAPY, 4 ROUNDS OF IT TREATMENT
     Route: 037
  2. METHOTREXATE [Suspect]
     Active Substance: METHOTREXATE
     Indication: Acute lymphocytic leukaemia
     Dosage: TRIPLE IT CHEMOTHERAPY, 4 ROUNDS OF IT TREATMENT
     Route: 037
  3. CYTARABINE [Suspect]
     Active Substance: CYTARABINE
     Indication: Acute lymphocytic leukaemia
     Dosage: TRIPLE IT CHEMOTHERAPY, 4 ROUNDS OF IT TREATMENT
     Route: 037
  4. PEG/L-ASPARAGINASE [Suspect]
     Active Substance: PEGASPARGASE
     Indication: Acute lymphocytic leukaemia
     Dosage: UNK
     Route: 030

REACTIONS (6)
  - Partial seizures [Recovered/Resolved]
  - Cerebral haemorrhage [Recovered/Resolved]
  - Myelosuppression [Recovered/Resolved]
  - Intracranial hypotension [Recovered/Resolved]
  - Superior sagittal sinus thrombosis [Recovered/Resolved]
  - Coagulation test abnormal [Recovered/Resolved]
